FAERS Safety Report 15563689 (Version 2)
Quarter: 2018Q4

REPORT INFORMATION
  Report Type: Report from Study
  Country: HU (occurrence: HU)
  Receive Date: 20181029
  Receipt Date: 20181102
  Transmission Date: 20190205
  Serious: Yes (Death, Hospitalization, Other)
  Sender: FDA-Public Use
  Company Number: PHHY2018HU131649

PATIENT
  Age: 26 Year
  Sex: Male
  Weight: 80 kg

DRUGS (5)
  1. YERVOY [Concomitant]
     Active Substance: IPILIMUMAB
     Indication: INFUSION
     Route: 065
  2. MEKINIST [Suspect]
     Active Substance: TRAMETINIB DIMETHYL SULFOXIDE
     Indication: METASTATIC MALIGNANT MELANOMA
     Dosage: 2 MG, QD
     Route: 048
     Dates: start: 20180328, end: 20180810
  3. OPDIVO [Concomitant]
     Active Substance: NIVOLUMAB
     Indication: INFUSION
     Route: 065
  4. CANDESARTAN. [Concomitant]
     Active Substance: CANDESARTAN
     Indication: PRODUCT USED FOR UNKNOWN INDICATION
     Dosage: 2 MG, QD (1X/IN THE MORNING )
     Route: 065
  5. TAFINLAR [Suspect]
     Active Substance: DABRAFENIB MESYLATE
     Indication: METASTATIC MALIGNANT MELANOMA
     Dosage: 150 MG, BID
     Route: 048
     Dates: start: 20180328, end: 20180810

REACTIONS (7)
  - Lymphadenopathy [Not Recovered/Not Resolved]
  - Malignant neoplasm progression [Not Recovered/Not Resolved]
  - Cytokine storm [Fatal]
  - Acute respiratory failure [Fatal]
  - Pyrexia [Fatal]
  - Metastases to skin [Not Recovered/Not Resolved]
  - Metastases to liver [Not Recovered/Not Resolved]

NARRATIVE: CASE EVENT DATE: 20180808
